FAERS Safety Report 12398393 (Version 1)
Quarter: 2016Q2

REPORT INFORMATION
  Report Type: Spontaneous
  Country: US (occurrence: None)
  Receive Date: 20160523
  Receipt Date: 20160523
  Transmission Date: 20160815
  Serious: Yes (Hospitalization)
  Sender: FDA-Public Use
  Company Number: None

PATIENT
  Age: 33 Year
  Sex: Male

DRUGS (2)
  1. PRAZOSIN, 1 MG MYLAN [Suspect]
     Active Substance: PRAZOSIN
     Indication: POST-TRAUMATIC STRESS DISORDER
     Dates: start: 20160210, end: 20160210
  2. OLANZAPINE ODT, 10 MG [Suspect]
     Active Substance: OLANZAPINE
     Indication: PSYCHOTIC DISORDER
     Route: 048
     Dates: start: 20160210, end: 20160210

REACTIONS (7)
  - Bursitis [None]
  - Fall [None]
  - Joint injury [None]
  - Laceration [None]
  - Syncope [None]
  - Head injury [None]
  - Hypotension [None]

NARRATIVE: CASE EVENT DATE: 20160211
